FAERS Safety Report 18815487 (Version 1)
Quarter: 2021Q1

REPORT INFORMATION
  Report Type: Spontaneous
  Country: FR (occurrence: FR)
  Receive Date: 20210201
  Receipt Date: 20210201
  Transmission Date: 20210419
  Serious: Yes (Other)
  Sender: FDA-Public Use
  Company Number: FR-ROCHE-2759532

PATIENT
  Age: 30 Year
  Sex: Male

DRUGS (1)
  1. RIVOTRIL [Suspect]
     Active Substance: CLONAZEPAM
     Indication: PRODUCT USED FOR UNKNOWN INDICATION
     Dosage: ORAL SOLUTION IN DROP?FORM STRENGTH: 2.5 MG/ML
     Route: 048
     Dates: start: 20201203

REACTIONS (4)
  - Somnolence [Recovered/Resolved]
  - Incorrect dose administered [Unknown]
  - Bradypnoea [Recovered/Resolved]
  - Product prescribing error [Unknown]

NARRATIVE: CASE EVENT DATE: 20201203
